FAERS Safety Report 22220940 (Version 1)
Quarter: 2023Q2

REPORT INFORMATION
  Report Type: Spontaneous
  Country: IN (occurrence: IN)
  Receive Date: 20230418
  Receipt Date: 20230418
  Transmission Date: 20230722
  Serious: Yes (Other)
  Sender: FDA-Public Use
  Company Number: ALC2023IN002000

PATIENT
  Age: 45 Year
  Sex: Female

DRUGS (4)
  1. NETARSUDIL [Suspect]
     Active Substance: NETARSUDIL
     Indication: Intraocular pressure fluctuation
     Route: 061
  2. TIMOLOL [Concomitant]
     Active Substance: TIMOLOL
     Dosage: UNK UNK, BID
     Route: 065
  3. BRIMONIDINE [Concomitant]
     Active Substance: BRIMONIDINE TARTRATE
     Dosage: UNK UNK, TID
     Route: 065
  4. FLUOROMETHOLONE [Concomitant]
     Active Substance: FLUOROMETHOLONE
     Dosage: UNK UNK, QD
     Route: 065

REACTIONS (3)
  - Corneal oedema [Recovered/Resolved]
  - Conjunctival hyperaemia [Recovered/Resolved]
  - Off label use [Unknown]
